FAERS Safety Report 14506118 (Version 1)
Quarter: 2018Q1

REPORT INFORMATION
  Report Type: Spontaneous
  Country: FI (occurrence: FI)
  Receive Date: 20180208
  Receipt Date: 20180208
  Transmission Date: 20180509
  Serious: Yes (Disabling)
  Sender: FDA-Public Use
  Company Number: FI-PFIZER INC-2018053521

PATIENT
  Age: 54 Year
  Sex: Male

DRUGS (9)
  1. TRAMAL RETARD [Suspect]
     Active Substance: TRAMADOL
     Dosage: 300 MG, DAILY
     Route: 048
     Dates: start: 20101018
  2. PRIMASPAN [Concomitant]
     Active Substance: ASPIRIN
     Dosage: 100 MG, DAILY
     Route: 048
     Dates: start: 1982
  3. HISTEC [Concomitant]
     Active Substance: CETIRIZINE HYDROCHLORIDE
     Dosage: 10 MG, AS NEEDED (AS NECESSARY)
     Route: 048
     Dates: start: 20100610
  4. SOMAC [Concomitant]
     Active Substance: PANTOPRAZOLE SODIUM
     Dosage: 40 MG, DAILY
     Route: 048
     Dates: start: 20100610
  5. PREDNISOLON /00016201/ [Suspect]
     Active Substance: PREDNISOLONE
     Indication: ORGANISING PNEUMONIA
     Dosage: UNK
     Route: 048
     Dates: start: 20100610, end: 20110706
  6. LYRICA [Suspect]
     Active Substance: PREGABALIN
     Dosage: 225 MG, DAILY
     Route: 048
     Dates: start: 20100215
  7. ATACAND [Concomitant]
     Active Substance: CANDESARTAN CILEXETIL
     Dosage: 8 MG, DAILY
     Route: 048
     Dates: start: 2000
  8. PANADOL [Concomitant]
     Active Substance: ACETAMINOPHEN
     Dosage: 3 G, DAILY
     Route: 048
     Dates: start: 2008
  9. EMCONCOR [Concomitant]
     Active Substance: BISOPROLOL FUMARATE
     Dosage: 2.5 MG, DAILY
     Route: 048
     Dates: start: 2000

REACTIONS (5)
  - Stress fracture [Not Recovered/Not Resolved]
  - Meralgia paraesthetica [Not Recovered/Not Resolved]
  - Gait disturbance [Not Recovered/Not Resolved]
  - Posterior tibial nerve injury [Not Recovered/Not Resolved]
  - Fall [Not Recovered/Not Resolved]

NARRATIVE: CASE EVENT DATE: 20110204
